FAERS Safety Report 16744327 (Version 1)
Quarter: 2019Q3

REPORT INFORMATION
  Report Type: Spontaneous
  Country: LV (occurrence: LV)
  Receive Date: 20190827
  Receipt Date: 20190827
  Transmission Date: 20191005
  Serious: Yes (Other)
  Sender: FDA-Public Use
  Company Number: LV-TEVA-2019-LV-1096637

PATIENT
  Age: 60 Year
  Sex: Female
  Weight: 90 kg

DRUGS (3)
  1. ATORVASTATIN ACTAVIS 20 MG APVALKOTAS TABLETES [Suspect]
     Active Substance: ATORVASTATIN
     Indication: BLOOD CHOLESTEROL INCREASED
     Dosage: 20MG
     Route: 048
     Dates: start: 20190715, end: 20190719
  2. HJERTEMAGNYL 75 MG [Concomitant]
     Dosage: FOR ACTIVE INGREDIENT ACIDUM ACETYLSALICYLICUM (ASA) THE STRENGTH IS 75 MILLIGRAM .
     Route: 048
     Dates: start: 20190101, end: 20190717
  3. RANEXA [Concomitant]
     Active Substance: RANOLAZINE

REACTIONS (2)
  - Proteinuria [Unknown]
  - Blood urine present [Recovered/Resolved]

NARRATIVE: CASE EVENT DATE: 20190715
